FAERS Safety Report 5125005-7 (Version None)
Quarter: 2006Q4

REPORT INFORMATION
  Report Type: 
  Country: None (occurrence: None)
  Receive Date: 20061010
  Receipt Date: 20061010
  Transmission Date: 20070319
  Serious: Yes (Death)
  Sender: FDA-Public Use
  Company Number: None

PATIENT
  Age: 71 Year
  Sex: Female
  Weight: 58.9676 kg

DRUGS (1)
  1. METAMUCIL-2 [Suspect]
     Indication: CONSTIPATION
     Dosage: 1 TO 3 TEASPOONS 3 TIMES DAILY PO
     Route: 048
     Dates: start: 20060906, end: 20060906

REACTIONS (5)
  - BRAIN DAMAGE [None]
  - CHOKING [None]
  - LOSS OF CONSCIOUSNESS [None]
  - MEDICATION ERROR [None]
  - WRONG TECHNIQUE IN DRUG USAGE PROCESS [None]
